FAERS Safety Report 10028199 (Version 5)
Quarter: 2014Q2

REPORT INFORMATION
  Report Type: Spontaneous
  Country: US (occurrence: US)
  Receive Date: 20140321
  Receipt Date: 20140415
  Transmission Date: 20141212
  Serious: Yes (Life-Threatening)
  Sender: FDA-Public Use
  Company Number: PHEH2014US004147

PATIENT
  Age: 76 Year
  Sex: Female

DRUGS (2)
  1. DIOVAN HCT [Suspect]
  2. HYDROCHLOROTHIAZIDE,VALSARTAN [Suspect]
     Dosage: (160 MG VALS/ 12.5 MG HYDR), UNK
     Dates: end: 20140217

REACTIONS (16)
  - Feeling abnormal [Unknown]
  - Cardiac disorder [Unknown]
  - Muscle spasticity [Unknown]
  - Myalgia [Unknown]
  - Hand deformity [Unknown]
  - Grip strength decreased [Unknown]
  - Urinary incontinence [Unknown]
  - Fear [Unknown]
  - Anger [Unknown]
  - Musculoskeletal stiffness [Unknown]
  - Muscle spasms [Unknown]
  - Limb discomfort [Unknown]
  - Walking disability [Unknown]
  - Insomnia [Unknown]
  - Pain [Unknown]
  - Blood pressure inadequately controlled [Unknown]
